FAERS Safety Report 4607480-7 (Version None)
Quarter: 2005Q1

REPORT INFORMATION
  Report Type: 
  Country: None (occurrence: None)
  Receive Date: 20050314
  Receipt Date: 20050302
  Transmission Date: 20050727
  Serious: Yes (Hospitalization)
  Sender: FDA-Public Use
  Company Number: US-JNJFOC-20050301335

PATIENT
  Sex: Female
  Weight: 58.97 kg

DRUGS (3)
  1. ORTHO EVRA [Suspect]
     Indication: CONTRACEPTION
     Route: 062
  2. PAIN RELIEVER [Concomitant]
     Indication: ARTHRITIS
     Route: 065
  3. MUSCLE RELAXER [Concomitant]
     Indication: ARTHRITIS
     Route: 065

REACTIONS (3)
  - INFECTIOUS MONONUCLEOSIS [None]
  - OROPHARYNGEAL SWELLING [None]
  - STREPTOCOCCAL INFECTION [None]
